FAERS Safety Report 4776084-8 (Version None)
Quarter: 2005Q3

REPORT INFORMATION
  Report Type: 
  Country: None (occurrence: None)
  Receive Date: 20050922
  Receipt Date: 20050919
  Transmission Date: 20060218
  Serious: Yes (Death)
  Sender: FDA-Public Use
  Company Number: 2005AC01448

PATIENT

DRUGS (1)
  1. AMITRIPTYLINE HCL [Suspect]
     Route: 048

REACTIONS (2)
  - DEATH [None]
  - OVERDOSE [None]
